FAERS Safety Report 11983856 (Version 1)
Quarter: 2016Q1

REPORT INFORMATION
  Report Type: Spontaneous
  Country: BE (occurrence: BE)
  Receive Date: 20160201
  Receipt Date: 20160201
  Transmission Date: 20160526
  Serious: Yes (Other)
  Sender: FDA-Public Use
  Company Number: BE-PFIZER INC-2016052477

PATIENT
  Age: 75 Year
  Sex: Male

DRUGS (2)
  1. PANTOMED [Suspect]
     Active Substance: DEXPANTHENOL
     Dosage: 40 MG, DAILY
     Route: 048
  2. PANTOMED [Suspect]
     Active Substance: DEXPANTHENOL
     Dosage: 20 MG, DAILY
     Route: 048

REACTIONS (1)
  - Renal failure [Unknown]
